FAERS Safety Report 8392598-6 (Version None)
Quarter: 2012Q2

REPORT INFORMATION
  Report Type: 
  Country: None (occurrence: None)
  Receive Date: 20120529
  Receipt Date: 20120210
  Transmission Date: 20120825
  Serious: Yes (Other)
  Sender: FDA-Public Use
  Company Number: DE-INCYTE CORPORATION-2012IN000203

PATIENT
  Sex: Male

DRUGS (3)
  1. FLECAINIDE ACETATE [Concomitant]
     Dosage: UNK
     Dates: start: 20100801, end: 20120201
  2. ALLOPURINOL [Concomitant]
     Dosage: UNK
     Dates: start: 20091201
  3. INC424 [Suspect]
     Indication: MYELOFIBROSIS
     Dosage: UNK
     Dates: start: 20120113, end: 20120208

REACTIONS (1)
  - LEFT VENTRICULAR DYSFUNCTION [None]
